APPROVED DRUG PRODUCT: BENICAR HCT
Active Ingredient: HYDROCHLOROTHIAZIDE; OLMESARTAN MEDOXOMIL
Strength: 12.5MG;20MG
Dosage Form/Route: TABLET;ORAL
Application: N021532 | Product #002 | TE Code: AB
Applicant: COSETTE PHARMACEUTICALS INC
Approved: Jun 5, 2003 | RLD: Yes | RS: No | Type: RX